FAERS Safety Report 6389943-X (Version None)
Quarter: 2009Q4

REPORT INFORMATION
  Report Type: 
  Country: None (occurrence: None)
  Receive Date: 20091006
  Receipt Date: 20090518
  Transmission Date: 20100525
  Serious: No
  Sender: FDA-Public Use
  Company Number: US-BRISTOL-MYERS SQUIBB COMPANY-14631667

PATIENT
  Age: 73 Year
  Sex: Male

DRUGS (4)
  1. AVAPRO [Suspect]
     Indication: HYPERTENSION
     Dosage: ALSO TAKEN 150MG PER DAY AND 300 MG PER DAY
  2. HYDRALAZINE [Suspect]
  3. HYDROCHLOROTHIAZIDE [Suspect]
  4. CLONIDINE [Suspect]

REACTIONS (1)
  - NAUSEA [None]
